FAERS Safety Report 8900375 (Version 1)
Quarter: 2012Q4

REPORT INFORMATION
  Report Type: 
  Country: US (occurrence: US)
  Receive Date: 20121108
  Receipt Date: 20121108
  Transmission Date: 20130627
  Serious: No
  Sender: FDA-Public Use
  Company Number: US-AMGEN-USASP2012038114

PATIENT
  Age: 13 Year
  Sex: Male
  Weight: 63.49 kg

DRUGS (3)
  1. ENBREL [Suspect]
     Indication: PRODUCT USED FOR UNKNOWN INDICATION
     Dosage: 50 mg/ml, qwk
     Route: 058
  2. FOLIC ACID [Concomitant]
     Dosage: 1 mg, UNK
  3. METHOTREXATE [Concomitant]
     Dosage: 25 mg, UNK

REACTIONS (2)
  - Wrong technique in drug usage process [Unknown]
  - Injection site pain [Unknown]
